FAERS Safety Report 7556552-6 (Version None)
Quarter: 2011Q2

REPORT INFORMATION
  Report Type: 
  Country: None (occurrence: None)
  Receive Date: 20110620
  Receipt Date: 20110607
  Transmission Date: 20111010
  Serious: Yes (Other)
  Sender: FDA-Public Use
  Company Number: US-TYCO HEALTHCARE/MALLINCKRODT-T201101191

PATIENT
  Age: 65 Year

DRUGS (1)
  1. METHADOSE [Suspect]

REACTIONS (1)
  - CARDIOMYOPATHY [None]
